FAERS Safety Report 5262372-8 (Version None)
Quarter: 2007Q1

REPORT INFORMATION
  Report Type: 
  Country: None (occurrence: None)
  Receive Date: 20070308
  Receipt Date: 20070223
  Transmission Date: 20070707
  Serious: Yes (Other)
  Sender: FDA-Public Use
  Company Number: 15751

PATIENT
  Age: 33 Year
  Sex: Male

DRUGS (3)
  1. BLEOMYCIN [Suspect]
     Indication: TESTIS CANCER
     Dates: start: 20000701, end: 20001001
  2. CISPLATIN [Suspect]
     Indication: TESTIS CANCER
     Dates: start: 20000701, end: 20001001
  3. ETOPOSIDE [Suspect]
     Indication: TESTIS CANCER
     Dates: start: 20000701, end: 20001001

REACTIONS (1)
  - AZOOSPERMIA [None]
